FAERS Safety Report 24340248 (Version 1)
Quarter: 2024Q3

REPORT INFORMATION
  Report Type: Spontaneous
  Country: US (occurrence: US)
  Receive Date: 20240919
  Receipt Date: 20240919
  Transmission Date: 20241016
  Serious: No
  Sender: DR REDDYS
  Company Number: US-DRL-USA-SPO/USA/24/0013522

PATIENT
  Age: 71 Year
  Sex: Female

DRUGS (2)
  1. SIROLIMUS [Suspect]
     Active Substance: SIROLIMUS
     Indication: Bone loss
     Dates: start: 2019
  2. SIROLIMUS [Suspect]
     Active Substance: SIROLIMUS
     Indication: Periodontal disease

REACTIONS (1)
  - Drug ineffective for unapproved indication [Unknown]
